FAERS Safety Report 13981494 (Version 1)
Quarter: 2017Q3

REPORT INFORMATION
  Report Type: Spontaneous
  Country: US (occurrence: US)
  Receive Date: 20170917
  Receipt Date: 20170917
  Transmission Date: 20171128
  Serious: Yes (Disabling)
  Sender: FDA-Public Use
  Company Number: None

PATIENT
  Age: 34 Year
  Sex: Male
  Weight: 86.85 kg

DRUGS (2)
  1. XYREM [Suspect]
     Active Substance: SODIUM OXYBATE
     Indication: NARCOLEPSY
     Dosage: OTHER FREQUENCY:TWICE PER NIGHT;?
     Route: 048
  2. XYREM [Suspect]
     Active Substance: SODIUM OXYBATE
     Indication: SOMNOLENCE
     Dosage: OTHER FREQUENCY:TWICE PER NIGHT;?
     Route: 048

REACTIONS (10)
  - Hyperhidrosis [None]
  - Dizziness [None]
  - Memory impairment [None]
  - Cognitive disorder [None]
  - Tremor [None]
  - Middle insomnia [None]
  - Poisoning [None]
  - Euphoric mood [None]
  - Insomnia [None]
  - Lethargy [None]

NARRATIVE: CASE EVENT DATE: 20150602
